FAERS Safety Report 4895824-0 (Version None)
Quarter: 2006Q1

REPORT INFORMATION
  Report Type: 
  Country: None (occurrence: None)
  Receive Date: 20060125
  Receipt Date: 20060110
  Transmission Date: 20060701
  Serious: Yes (Other)
  Sender: FDA-Public Use
  Company Number: 2006-01-0542

PATIENT
  Age: 50 Year
  Sex: Female

DRUGS (2)
  1. NASONEX [Suspect]
     Indication: MUCOUS MEMBRANE DISORDER
     Dosage: 200 MCG QD NASAL SPRAY
     Route: 045
     Dates: start: 20050901, end: 20060109
  2. INTERFERON BETA-1B INJECTABLE [Suspect]
     Indication: MULTIPLE SCLEROSIS
     Dosage: Q2D SUBCUTANEOUS
     Route: 058
     Dates: start: 19990201

REACTIONS (8)
  - AGEUSIA [None]
  - ANOSMIA [None]
  - DYSGEUSIA [None]
  - EXTRASYSTOLES [None]
  - GLOSSODYNIA [None]
  - OEDEMA PERIPHERAL [None]
  - PAROSMIA [None]
  - SYNCOPE [None]
